FAERS Safety Report 7309204-1 (Version None)
Quarter: 2011Q1

REPORT INFORMATION
  Report Type: 
  Country: None (occurrence: None)
  Receive Date: 20110223
  Receipt Date: 20110221
  Transmission Date: 20110831
  Serious: Yes (Death, Hospitalization, Congenital Anomaly)
  Sender: FDA-Public Use
  Company Number: JP-ABBOTT-11P-087-0705494-00

PATIENT
  Sex: Male

DRUGS (8)
  1. HUMIRA [Suspect]
     Route: 058
     Dates: start: 20100408, end: 20100617
  2. CILOSTAZOL [Concomitant]
     Indication: CEREBRAL INFARCTION
     Route: 048
  3. HUMIRA [Suspect]
     Route: 058
     Dates: start: 20100325, end: 20100325
  4. CALCIPOTRIOL [Concomitant]
     Indication: PSORIASIS
     Route: 061
  5. BETAMETHASONE BUTYRATE PROPIONATE [Concomitant]
     Indication: PSORIASIS
     Route: 061
  6. CILNIDIPINE [Concomitant]
     Indication: HYPERTENSION
     Route: 048
  7. HUMIRA [Suspect]
     Indication: PSORIASIS
     Route: 058
     Dates: start: 20100729, end: 20101227
  8. RABEPRAZOLE SODIUM [Concomitant]
     Indication: GASTROINTESTINAL DISORDER
     Route: 048

REACTIONS (2)
  - HEPATIC FAILURE [None]
  - HEPATIC FUNCTION ABNORMAL [None]
